FAERS Safety Report 14786089 (Version 5)
Quarter: 2018Q2

REPORT INFORMATION
  Report Type: Report from Study
  Country: US (occurrence: US)
  Receive Date: 20180420
  Receipt Date: 20180629
  Transmission Date: 20180711
  Serious: Yes (Other)
  Sender: FDA-Public Use
  Company Number: US-GILEAD-2018-0333520

PATIENT
  Age: 61 Year
  Sex: Female

DRUGS (5)
  1. REVATIO [Concomitant]
     Active Substance: SILDENAFIL CITRATE
  2. AMBRISENTAN [Suspect]
     Active Substance: AMBRISENTAN
     Indication: PULMONARY HYPERTENSION
  3. AMBRISENTAN [Suspect]
     Active Substance: AMBRISENTAN
     Indication: PULMONARY ARTERIAL HYPERTENSION
     Dosage: 5 MG, QD
     Route: 048
     Dates: start: 201803
  4. AMBRISENTAN [Suspect]
     Active Substance: AMBRISENTAN
     Indication: PORTOPULMONARY HYPERTENSION
     Dosage: 10 MG, QD
     Route: 065
     Dates: start: 20180416
  5. SILDENAFIL                         /01367502/ [Concomitant]
     Active Substance: SILDENAFIL

REACTIONS (9)
  - Pulmonary thrombosis [Unknown]
  - Dyspnoea [Unknown]
  - Fatigue [Not Recovered/Not Resolved]
  - Deep vein thrombosis [Unknown]
  - Hepatic cirrhosis [Unknown]
  - Nasopharyngitis [Not Recovered/Not Resolved]
  - Malaise [Not Recovered/Not Resolved]
  - Abdominal discomfort [Unknown]
  - Oedema [Unknown]
